FAERS Safety Report 15686546 (Version 3)
Quarter: 2019Q2

REPORT INFORMATION
  Report Type: Spontaneous
  Country: US (occurrence: US)
  Receive Date: 20181204
  Receipt Date: 20190524
  Transmission Date: 20190711
  Serious: Yes (Life-Threatening, Hospitalization, Other)
  Sender: FDA-Public Use
  Company Number: US-009507513-1811USA012854

PATIENT
  Age: 68 Year
  Sex: Female

DRUGS (4)
  1. LOVASTATIN. [Concomitant]
     Active Substance: LOVASTATIN
  2. AMLODIPINE [Concomitant]
     Active Substance: AMLODIPINE BESYLATE
  3. HYDROCHLOROTHIAZIDE. [Concomitant]
     Active Substance: HYDROCHLOROTHIAZIDE
  4. LISINOPRIL. [Suspect]
     Active Substance: LISINOPRIL
     Indication: HYPERTENSION
     Dosage: 5 MILLIGRAM, QD
     Route: 048
     Dates: start: 2015, end: 201811

REACTIONS (12)
  - Epiglottitis [Unknown]
  - Angioedema [Recovering/Resolving]
  - Osteoarthritis [Unknown]
  - Macroglossia [Unknown]
  - Pharyngeal abscess [Unknown]
  - Blood iron decreased [Unknown]
  - Obstructive airways disorder [Unknown]
  - Meningitis [Unknown]
  - Nasopharyngitis [Recovering/Resolving]
  - Abscess jaw [Recovering/Resolving]
  - Lymphadenitis [Unknown]
  - Peritonsillar abscess [Unknown]

NARRATIVE: CASE EVENT DATE: 2018
